FAERS Safety Report 4899682-X (Version None)
Quarter: 2006Q1

REPORT INFORMATION
  Report Type: 
  Country: None (occurrence: None)
  Receive Date: 20060202
  Receipt Date: 20060123
  Transmission Date: 20060701
  Serious: Yes (Other)
  Sender: FDA-Public Use
  Company Number: US-MERCK-0601USA02819

PATIENT
  Sex: Male

DRUGS (3)
  1. VYTORIN [Suspect]
     Route: 048
     Dates: start: 20051201
  2. LESCOL [Concomitant]
     Route: 065
     Dates: end: 20051201
  3. ZETIA [Concomitant]
     Route: 048
     Dates: end: 20051201

REACTIONS (1)
  - BLINDNESS UNILATERAL [None]
